FAERS Safety Report 8479463-0 (Version None)
Quarter: 2012Q2

REPORT INFORMATION
  Report Type: 
  Country: None (occurrence: None)
  Receive Date: 20120629
  Receipt Date: 20111221
  Transmission Date: 20120825
  Serious: Yes (Hospitalization, Other)
  Sender: FDA-Public Use
  Company Number: KR-UCBSA-014048

PATIENT
  Age: 71 Year
  Sex: Female
  Weight: 57.3 kg

DRUGS (20)
  1. LEVOCETIRIZINE HCL [Concomitant]
     Indication: BRONCHITIS
     Route: 048
     Dates: start: 20100524
  2. FERROUS SULFATE TAB [Concomitant]
     Indication: ANAEMIA PROPHYLAXIS
     Route: 048
     Dates: start: 20100118
  3. CIMZIA [Suspect]
     Indication: RHEUMATOID ARTHRITIS
     Dosage: TWICE MONTHLY
     Route: 058
     Dates: start: 20100316, end: 20100607
  4. CELECOXIB [Concomitant]
     Indication: RHEUMATOID ARTHRITIS
     Route: 048
     Dates: start: 20081201
  5. BENPROPERINE [Concomitant]
     Indication: BRONCHITIS
     Route: 048
     Dates: start: 20100524, end: 20100625
  6. METHOTREXATE [Concomitant]
     Indication: RHEUMATOID ARTHRITIS
     Route: 048
     Dates: start: 20090105, end: 20100616
  7. ACETAMINOPHEN [Concomitant]
     Indication: RHEUMATOID ARTHRITIS
     Route: 048
     Dates: start: 20081201
  8. AVOCADO-SOYA UNSAPONIFIABLE [Concomitant]
     Indication: OSTEOARTHRITIS
     Route: 048
     Dates: start: 20081201
  9. ADCAL [Concomitant]
     Indication: OSTEOPOROSIS
     Dosage: 1 TAB ONCE DAILY
     Route: 048
     Dates: start: 20081201
  10. RANITIDINE HCL [Concomitant]
     Indication: GASTRITIS PROPHYLAXIS
     Route: 048
     Dates: start: 20091201, end: 20100321
  11. METHYLPREDNISOLONE [Concomitant]
     Indication: RHEUMATOID ARTHRITIS
     Route: 048
     Dates: start: 20100216
  12. JOINS TAB [Concomitant]
     Indication: OSTEOARTHRITIS
     Dosage: 1 TAB TWICE DAILY
     Route: 048
     Dates: start: 20081201
  13. FOSAMAX PLUS D [Concomitant]
     Indication: OSTEOPOROSIS
     Dosage: 1 TAB ONCE WEEKLY
     Route: 048
     Dates: start: 20090105
  14. ASPIRIN [Concomitant]
     Indication: ANGIOPATHY
     Route: 048
     Dates: start: 20090401
  15. LIMAPROST [Concomitant]
     Indication: INTERMITTENT CLAUDICATION
     Route: 048
     Dates: start: 20090209
  16. FAMOTIDINE [Concomitant]
     Indication: GASTRITIS
     Route: 048
     Dates: start: 20100322
  17. BROMHEXINE HYDROCHLORIDE [Concomitant]
     Indication: BRONCHIECTASIS
     Route: 048
     Dates: start: 20100524
  18. FOLIC ACID [Concomitant]
     Indication: DRUG TOXICITY PROPHYLAXIS
     Route: 048
     Dates: start: 20081201
  19. BROMHEXINE HYDROCHLORIDE [Concomitant]
     Indication: BRONCHITIS
     Route: 048
     Dates: start: 20100524
  20. AUGMENTIN '125' [Concomitant]
     Indication: BRONCHITIS
     Dosage: 1 TAB THREE TIMES DAILY
     Route: 048
     Dates: start: 20100524, end: 20100606

REACTIONS (3)
  - BRONCHIECTASIS [None]
  - PYELONEPHRITIS ACUTE [None]
  - DIZZINESS [None]
